FAERS Safety Report 21405203 (Version 2)
Quarter: 2022Q4

REPORT INFORMATION
  Report Type: Spontaneous
  Country: FR (occurrence: FR)
  Receive Date: 20221004
  Receipt Date: 20221030
  Transmission Date: 20230112
  Serious: Yes (Other)
  Sender: FDA-Public Use
  Company Number: FR-009507513-2209FRA006378

PATIENT
  Age: 70 Year
  Sex: Female
  Weight: 85 kg

DRUGS (5)
  1. CARBOPLATIN [Suspect]
     Active Substance: CARBOPLATIN
     Indication: Chemotherapy
     Dosage: UNK, CYCLICAL(1.5 AUC )
     Route: 042
     Dates: start: 20220719
  2. CARBOPLATIN [Suspect]
     Active Substance: CARBOPLATIN
     Dosage: UNK
     Route: 042
     Dates: start: 20220713
  3. KEYTRUDA [Suspect]
     Active Substance: PEMBROLIZUMAB
     Indication: Triple negative breast cancer
     Dosage: 200 MG EVERY 3 WEEKS
     Route: 065
     Dates: start: 20220719
  4. PACLITAXEL [Suspect]
     Active Substance: PACLITAXEL
     Indication: Chemotherapy
     Dosage: 60 MILLIGRAM/SQ. METER, CYCLICAL
     Route: 042
     Dates: start: 20220719
  5. PACLITAXEL [Suspect]
     Active Substance: PACLITAXEL
     Dosage: UNK
     Route: 042
     Dates: start: 20220913

REACTIONS (7)
  - Neuropathy peripheral [Unknown]
  - Dyspepsia [Recovered/Resolved]
  - Blood test abnormal [Unknown]
  - Pruritus [Recovering/Resolving]
  - Asthenia [Unknown]
  - Toxicity to various agents [Unknown]
  - Drug hypersensitivity [Recovered/Resolved]

NARRATIVE: CASE EVENT DATE: 20220101
